FAERS Safety Report 4902795-7 (Version None)
Quarter: 2006Q1

REPORT INFORMATION
  Report Type: 
  Country: None (occurrence: None)
  Receive Date: 20060207
  Receipt Date: 20060131
  Transmission Date: 20060701
  Serious: Yes (Death)
  Sender: FDA-Public Use
  Company Number: 06-011

PATIENT
  Age: 57 Year
  Sex: Female
  Weight: 60 kg

DRUGS (7)
  1. MOTIVAN [Suspect]
     Dates: end: 20051110
  2. ERLOTINIB [Suspect]
     Indication: LUNG NEOPLASM MALIGNANT
     Dosage: 100MG PER DAY
     Route: 048
     Dates: start: 20050801, end: 20051110
  3. FENTANYL [Suspect]
     Dates: end: 20051110
  4. DEXAMETHASONE [Suspect]
     Dates: end: 20051110
  5. GABAPENTIN [Suspect]
     Dates: end: 20051110
  6. OMEPRAZOLE [Suspect]
     Dates: end: 20051110
  7. ZOMETA [Suspect]
     Dates: end: 20051110

REACTIONS (1)
  - SUDDEN DEATH [None]
